FAERS Safety Report 7181251-2 (Version None)
Quarter: 2010Q4

REPORT INFORMATION
  Report Type: 
  Country: None (occurrence: None)
  Receive Date: 20101221
  Receipt Date: 20100420
  Transmission Date: 20110411
  Serious: Yes (Other)
  Sender: FDA-Public Use
  Company Number: US-AMGEN-KDL407435

PATIENT

DRUGS (14)
  1. ENBREL [Suspect]
     Indication: PRODUCT USED FOR UNKNOWN INDICATION
     Dosage: 25 MG, 2 TIMES/WK
     Route: 058
  2. ESTROGENS CONJUGATED [Concomitant]
     Dosage: .625 MG, UNK
  3. AZATHIOPRINE [Concomitant]
     Dosage: 50 MG, UNK
  4. LEVOTHYROXINE SODIUM [Concomitant]
     Dosage: 88 A?G, UNK
  5. FEXOFENADINE HCL [Concomitant]
     Dosage: 60 MG, UNK
  6. NABUMETONE [Concomitant]
     Dosage: 500 MG, UNK
  7. LISINOPRIL [Concomitant]
     Dosage: 20 MG, UNK
  8. LOVAZA [Concomitant]
     Dosage: 1 G, UNK
  9. METOPROLOL TARTRATE [Concomitant]
     Dosage: 25 MG, UNK
  10. TRIAMTERENE AND HYDROCHLOROTHIAZIDE [Concomitant]
     Dosage: UNK UNK, UNK
  11. BIOTIN [Concomitant]
     Dosage: UNK UNK, UNK
  12. FERROUS SULFATE [Concomitant]
     Dosage: UNK UNK, UNK
  13. POTASSIUM [Concomitant]
     Dosage: 25 MEQ, UNK
  14. OMEPRAZOLE [Concomitant]
     Dosage: UNK UNK, UNK

REACTIONS (1)
  - SQUAMOUS CELL CARCINOMA [None]
